FAERS Safety Report 5119125-0 (Version None)
Quarter: 2006Q3

REPORT INFORMATION
  Report Type: 
  Country: None (occurrence: None)
  Receive Date: 20060928
  Receipt Date: 20060928
  Transmission Date: 20061208
  Serious: Yes (Other)
  Sender: FDA-Public Use
  Company Number: None

PATIENT
  Age: 44 Year
  Sex: Male
  Weight: 101.6057 kg

DRUGS (1)
  1. SERTRALINE [Suspect]
     Indication: DEPRESSION
     Dosage: 50 MG PO EVERYDAY
     Route: 048

REACTIONS (3)
  - DEPRESSED MOOD [None]
  - DEPRESSION [None]
  - THERAPY NON-RESPONDER [None]
